FAERS Safety Report 8893633 (Version 3)
Quarter: 2012Q4

REPORT INFORMATION
  Report Type: 
  Country: KZ (occurrence: KZ)
  Receive Date: 20121108
  Receipt Date: 20121203
  Transmission Date: 20130627
  Serious: Yes (Death, Hospitalization)
  Sender: FDA-Public Use
  Company Number: KZ-JNJFOC-20121101898

PATIENT
  Age: 28 Year
  Sex: Female
  Weight: 46 kg

DRUGS (19)
  1. REMICADE [Suspect]
     Indication: COLITIS ULCERATIVE
     Route: 042
     Dates: start: 20120716
  2. REMICADE [Suspect]
     Indication: COLITIS ULCERATIVE
     Route: 042
     Dates: start: 20120806, end: 20120914
  3. SALOFALK [Concomitant]
     Route: 065
  4. 5% GLUCOSE [Concomitant]
     Route: 065
  5. KALIUMCHLORIDE [Concomitant]
     Route: 065
  6. ASCORBIC ACID [Concomitant]
     Route: 065
  7. COSMOFER (IRON DEXTRAN) [Concomitant]
     Route: 065
  8. VITAMIN B1 [Concomitant]
     Route: 065
  9. VITAMIN B6 [Concomitant]
     Route: 065
  10. VITAMIN B12 [Concomitant]
     Route: 065
  11. CREON [Concomitant]
     Route: 065
  12. ALL OTHER THERAPEUTICS [Concomitant]
     Route: 065
  13. PREDNISOLONE [Concomitant]
     Route: 065
  14. VEROSPIRON [Concomitant]
     Route: 065
  15. FUROSEMIDE [Concomitant]
     Route: 065
  16. ANALGIN [Concomitant]
     Route: 065
  17. DIMEDROL [Concomitant]
     Route: 065
  18. BROMHEXINE [Concomitant]
     Route: 065
  19. INOSINE [Concomitant]
     Route: 065

REACTIONS (7)
  - Thrombocytopenia [Unknown]
  - Haematochezia [Unknown]
  - Hypovolaemic shock [Fatal]
  - Influenza like illness [Unknown]
  - Leukopenia [Unknown]
  - Neutropenia [Unknown]
  - Pus in stool [Unknown]
